FAERS Safety Report 8082537-X (Version None)
Quarter: 2012Q1

REPORT INFORMATION
  Report Type: 
  Country: None (occurrence: None)
  Receive Date: 20120127
  Receipt Date: 20110221
  Transmission Date: 20120608
  Serious: No
  Sender: FDA-Public Use
  Company Number: US-ABBOTT-11P-163-0706856-00

PATIENT
  Age: 41 Year
  Sex: Female

DRUGS (7)
  1. SINGULAIR [Concomitant]
     Indication: HYPERSENSITIVITY
     Dosage: DAILY
  2. ORAL CONTRACEPTIVE NOS [Concomitant]
     Indication: PRODUCT USED FOR UNKNOWN INDICATION
     Dosage: DAILY
  3. LIPOFEN [Concomitant]
     Indication: BLOOD CHOLESTEROL INCREASED
     Dosage: DAILY
  4. HUMIRA [Suspect]
     Indication: PSORIASIS
     Dosage: LOADING DOSE
     Dates: start: 20110131
  5. ATENOLOL [Concomitant]
     Indication: HYPERTENSION
     Dosage: DAILY
  6. HUMIRA [Suspect]
  7. SYNTHROID [Concomitant]
     Indication: HYPOTHYROIDISM
     Dosage: DAILY

REACTIONS (4)
  - POOR QUALITY DRUG ADMINISTERED [None]
  - INCORRECT DOSE ADMINISTERED [None]
  - PAIN [None]
  - INJECTION SITE PAIN [None]
